FAERS Safety Report 10905411 (Version 1)
Quarter: 2015Q1

REPORT INFORMATION
  Report Type: Spontaneous
  Country: US (occurrence: None)
  Receive Date: 20150309
  Receipt Date: 20150309
  Transmission Date: 20150721
  Serious: Yes (Disabling)
  Sender: FDA-Public Use
  Company Number: None

PATIENT
  Age: 50 Year
  Sex: Female
  Weight: 92.53 kg

DRUGS (13)
  1. MEDROXYPROGESTERONE 10 MG [Suspect]
     Active Substance: MEDROXYPROGESTERONE
     Indication: PRECANCEROUS CELLS PRESENT
     Route: 048
     Dates: start: 20150206, end: 20150224
  2. TEA [Concomitant]
     Active Substance: TEA LEAF
  3. MEDROXYPROGESTERONE 10 MG [Suspect]
     Active Substance: MEDROXYPROGESTERONE
     Indication: UTERINE POLYP
     Route: 048
     Dates: start: 20150206, end: 20150224
  4. NASACORT [Concomitant]
     Active Substance: TRIAMCINOLONE ACETONIDE
  5. COUGH SYRUP WITH CODEINE [Concomitant]
     Active Substance: CODEINE
  6. INHALER [Concomitant]
     Active Substance: UNSPECIFIED INGREDIENT
  7. IMITREX [Concomitant]
     Active Substance: SUMATRIPTAN\SUMATRIPTAN SUCCINATE
  8. VITAMIN B [Concomitant]
     Active Substance: VITAMIN B
  9. ALEVE [Concomitant]
     Active Substance: NAPROXEN SODIUM
  10. VITAMIN D [Concomitant]
     Active Substance: CHOLECALCIFEROL
  11. STEROIDS [Concomitant]
     Active Substance: UNSPECIFIED INGREDIENT
  12. CLARITIN-D 12 HOUR [Concomitant]
     Active Substance: LORATADINE\PSEUDOEPHEDRINE SULFATE
  13. ANTIBIOTIC [Concomitant]
     Active Substance: UNSPECIFIED INGREDIENT

REACTIONS (24)
  - Chills [None]
  - Chest discomfort [None]
  - Arthralgia [None]
  - Abdominal pain upper [None]
  - Muscle spasms [None]
  - Vomiting [None]
  - Myalgia [None]
  - Cough [None]
  - Wheezing [None]
  - Confusional state [None]
  - Hyperhidrosis [None]
  - Memory impairment [None]
  - Feeling abnormal [None]
  - Unevaluable event [None]
  - Dizziness [None]
  - Nasopharyngitis [None]
  - Pyrexia [None]
  - Dyspnoea [None]
  - Breath odour [None]
  - Feeling drunk [None]
  - Oedema [None]
  - Influenza [None]
  - Pharyngitis [None]
  - Sinusitis [None]

NARRATIVE: CASE EVENT DATE: 20150210
